FAERS Safety Report 13701411 (Version 1)
Quarter: 2017Q2

REPORT INFORMATION
  Report Type: Spontaneous
  Country: US (occurrence: US)
  Receive Date: 20170628
  Receipt Date: 20170628
  Transmission Date: 20170830
  Serious: Yes (Other)
  Sender: FDA-Public Use
  Company Number: None

PATIENT
  Age: 58 Year
  Sex: Male
  Weight: 5.4 kg

DRUGS (1)
  1. HUMIRA [Suspect]
     Active Substance: ADALIMUMAB
     Indication: HIDRADENITIS
     Dosage: 12 INJECTION(S); ONCE A WEEK; STOMACH?
     Dates: start: 20161214, end: 20170428

REACTIONS (3)
  - Weight decreased [None]
  - Abdominal pain upper [None]
  - Joint swelling [None]

NARRATIVE: CASE EVENT DATE: 20170608
